FAERS Safety Report 4595103-5 (Version None)
Quarter: 2005Q1

REPORT INFORMATION
  Report Type: 
  Country: None (occurrence: None)
  Receive Date: 20050223
  Receipt Date: 20050211
  Transmission Date: 20050727
  Serious: Yes (Life-Threatening)
  Sender: FDA-Public Use
  Company Number: 6013049

PATIENT
  Age: 70 Year
  Sex: Female

DRUGS (17)
  1. DETENSIEL (10 MG, TABLETS) (BISOPROLOL FUMARATE) [Suspect]
     Dosage: 1 DOSAGE FORMS (1 DOSAGE FORMS, 1 IN 1 D) ORAL
     Route: 048
  2. IKOREL (NICORANDIL) [Suspect]
  3. ATORVASTATIN CALCIUM [Suspect]
     Dosage: 10 MG (10 MG, 1 IN 1 D) ORAL
     Route: 048
     Dates: end: 20050117
  4. PREVISCAN (20 MG, TABLETS) (FLUINDIONE) [Suspect]
     Dosage: 20 MG (20 MG, 1 IN 1 D) ORAL
     Route: 048
     Dates: start: 19970615, end: 20050117
  5. ZYRTEC [Suspect]
     Dosage: 10 MG (10 MG, 1 IN 1 D) ORAL
     Route: 048
     Dates: start: 20020615, end: 20050117
  6. DIALGIREX (PARACETAMOL, DEXTROPROPOXYPHENE HYDROCHLORIDE) [Suspect]
     Dosage: (4 IN 1 D) ORAL
     Route: 048
     Dates: end: 20050117
  7. ATARAX [Suspect]
     Dosage: 50 MG ORAL
     Route: 048
     Dates: start: 20020615
  8. PRACTON (SPIRONOLACTONE) [Suspect]
  9. CLONAZEPAM [Suspect]
  10. AMLOR (AMLODIPINE BESILATE) [Suspect]
  11. SERC [Suspect]
  12. POLERY (CODEINE, ETHYLMORPHINE, SODIUM BENZOATE, SODIUM BROMIDE, BELLA [Suspect]
  13. MEDIVEINE (DIOSMIN) [Suspect]
  14. DUSPATALIN (MEBEVERINE HYDROCHLORIDE) [Suspect]
  15. XALATAN [Suspect]
  16. BALSAMORHINOL (EPHEDRINE, BERGAMOT OIL, AURANTIN, LEVOMENOL) [Suspect]
  17. FLUIDABAK [Suspect]
     Dosage: OPHTHALMIC
     Route: 047

REACTIONS (5)
  - ACUTE LEUKAEMIA [None]
  - FIBROSIS [None]
  - MYELODYSPLASTIC SYNDROME [None]
  - PANCYTOPENIA [None]
  - VIRAL INFECTION [None]
